FAERS Safety Report 6166641-9 (Version None)
Quarter: 2009Q2

REPORT INFORMATION
  Report Type: 
  Country: None (occurrence: None)
  Receive Date: 20090423
  Receipt Date: 20090423
  Transmission Date: 20091009
  Serious: Yes (Other)
  Sender: FDA-Public Use
  Company Number: None

PATIENT
  Age: 73 Year
  Sex: Female
  Weight: 72 kg

DRUGS (12)
  1. POTASSIUM CHLORIDE [Suspect]
     Indication: HYPOKALAEMIA
     Dosage: 10 MEQ DAILY PO
     Route: 048
  2. TOPROL-XL [Concomitant]
  3. LEXAPRO [Concomitant]
  4. NOVOLIN N [Concomitant]
  5. IMDUR [Concomitant]
  6. LASIX [Concomitant]
  7. CALTRATE + D [Concomitant]
  8. DIOVAN [Concomitant]
  9. MAGOX [Concomitant]
  10. DARVOCET [Concomitant]
  11. NEXIUM [Concomitant]
  12. POTASSIUM CHLORIDE [Concomitant]

REACTIONS (3)
  - ASTHENIA [None]
  - BLOOD POTASSIUM INCREASED [None]
  - GASTROINTESTINAL HAEMORRHAGE [None]
